FAERS Safety Report 17516113 (Version 1)
Quarter: 2020Q1

REPORT INFORMATION
  Report Type: Spontaneous
  Country: US (occurrence: US)
  Receive Date: 20200309
  Receipt Date: 20200309
  Transmission Date: 20200409
  Serious: No
  Sender: FDA-Public Use
  Company Number: US-TARO-2019TAR00476

PATIENT
  Sex: Female

DRUGS (3)
  1. TERCONAZOLE VAGINAL CREAM 0.4% [Suspect]
     Active Substance: TERCONAZOLE
     Indication: VAGINAL INFECTION
     Dosage: 1 APPLICATION, 1X/DAY
     Route: 067
     Dates: start: 201905, end: 2019
  2. TERCONAZOLE VAGINAL CREAM 0.4% [Suspect]
     Active Substance: TERCONAZOLE
     Dosage: 1 APPLICATION, 1X/DAY
     Route: 067
     Dates: start: 201906, end: 2019
  3. MULTIVITAMIN [Concomitant]
     Active Substance: VITAMINS

REACTIONS (4)
  - Therapeutic product effect incomplete [Recovered/Resolved]
  - Product dose omission [Recovered/Resolved]
  - Product quality issue [Recovered/Resolved]
  - Incorrect product administration duration [Recovered/Resolved]

NARRATIVE: CASE EVENT DATE: 2019
